FAERS Safety Report 10155771 (Version 2)
Quarter: 2014Q2

REPORT INFORMATION
  Report Type: Report from Study
  Country: US (occurrence: US)
  Receive Date: 20140506
  Receipt Date: 20140620
  Transmission Date: 20141212
  Serious: Yes (Hospitalization)
  Sender: FDA-Public Use
  Company Number: PHEH2014US008929

PATIENT
  Age: 81 Year
  Sex: Female

DRUGS (1)
  1. TOBI [Suspect]
     Dosage: 300 MG/5 ML
     Route: 055

REACTIONS (4)
  - Hip fracture [Unknown]
  - Spinal fracture [Unknown]
  - Diverticulitis [Unknown]
  - Osteoporosis [Unknown]
